FAERS Safety Report 16308059 (Version 1)
Quarter: 2019Q2

REPORT INFORMATION
  Report Type: Spontaneous
  Country: MX (occurrence: MX)
  Receive Date: 20190514
  Receipt Date: 20190514
  Transmission Date: 20190711
  Serious: Yes (Other)
  Sender: FDA-Public Use
  Company Number: MX-ALVOGEN-2019-ALVOGEN-099726

PATIENT
  Age: 3543 Week
  Sex: Female
  Weight: 62 kg

DRUGS (5)
  1. VARTALON [Concomitant]
     Indication: OSTEOARTHRITIS
     Route: 048
     Dates: start: 201811
  2. TENORETIC [Suspect]
     Active Substance: ATENOLOL\CHLORTHALIDONE
     Indication: CARDIAC DISORDER
     Dosage: 50.0MG AS REQUIRED
     Route: 048
  3. COLLAGEN/CHONDROITIN SULFATE [Concomitant]
     Indication: OSTEOARTHRITIS
     Dosage: DAILY
     Route: 048
     Dates: start: 201811
  4. TENORETIC [Suspect]
     Active Substance: ATENOLOL\CHLORTHALIDONE
     Indication: CARDIAC DISORDER
     Route: 048
     Dates: start: 1999
  5. TENORETIC [Suspect]
     Active Substance: ATENOLOL\CHLORTHALIDONE
     Indication: CARDIAC DISORDER
     Route: 048

REACTIONS (3)
  - Tachycardia [Not Recovered/Not Resolved]
  - Medication error [Not Recovered/Not Resolved]
  - Osteoarthritis [Not Recovered/Not Resolved]

NARRATIVE: CASE EVENT DATE: 201811
